FAERS Safety Report 16867999 (Version 1)
Quarter: 2019Q3

REPORT INFORMATION
  Report Type: Spontaneous
  Country: US (occurrence: US)
  Receive Date: 20190930
  Receipt Date: 20190930
  Transmission Date: 20191005
  Serious: No
  Sender: FDA-Public Use
  Company Number: US-DRREDDYS-USA/USA/19/0114436

PATIENT
  Sex: Female

DRUGS (1)
  1. PREGABALIN. [Suspect]
     Active Substance: PREGABALIN
     Indication: BURNING SENSATION
     Dosage: (RELATIVE TO 04-SEP-2019)
     Route: 048

REACTIONS (7)
  - Nervousness [Unknown]
  - Drug ineffective [Unknown]
  - Cardiac disorder [Unknown]
  - Head discomfort [Unknown]
  - Heart rate increased [Unknown]
  - Product quality issue [Unknown]
  - Malaise [Unknown]
